FAERS Safety Report 16784286 (Version 1)
Quarter: 2019Q3

REPORT INFORMATION
  Report Type: Spontaneous
  Country: CN (occurrence: CN)
  Receive Date: 20190909
  Receipt Date: 20190909
  Transmission Date: 20191005
  Serious: Yes (Hospitalization, Other)
  Sender: FDA-Public Use
  Company Number: CN-JNJFOC-20190836334

PATIENT
  Age: 61 Year
  Sex: Female
  Weight: 64 kg

DRUGS (4)
  1. EUCALYPTOL LIMONENE PINENE [Concomitant]
     Indication: UPPER RESPIRATORY TRACT INFECTION
     Dosage: GENERIC: QIE NUO
     Route: 048
  2. TARIVID                            /00731801/ [Concomitant]
     Active Substance: OFLOXACIN
     Indication: UPPER RESPIRATORY TRACT INFECTION
     Route: 048
     Dates: start: 20190818, end: 20190821
  3. TYLENOL [Suspect]
     Active Substance: ACETAMINOPHEN
     Indication: ANTIPYRESIS
     Dosage: EVERY 12 HR
     Route: 048
     Dates: start: 20190818, end: 20190821
  4. TARIVID                            /00731801/ [Concomitant]
     Active Substance: OFLOXACIN
     Route: 048
     Dates: start: 20190821

REACTIONS (1)
  - Pancytopenia [Recovered/Resolved]

NARRATIVE: CASE EVENT DATE: 20190821
